FAERS Safety Report 17488673 (Version 1)
Quarter: 2020Q1

REPORT INFORMATION
  Report Type: Spontaneous
  Country: US (occurrence: US)
  Receive Date: 20200220
  Receipt Date: 20200220
  Transmission Date: 20200409
  Serious: No
  Sender: FDA-Public Use
  Company Number: None

PATIENT
  Age: 88 Year
  Sex: Female
  Weight: 75.3 kg

DRUGS (1)
  1. IBRANCE [Suspect]
     Active Substance: PALBOCICLIB
     Indication: MALIGNANT CONNECTIVE TISSUE NEOPLASM
     Dosage: 125MG 1 CAPSULE DAILY X 21 DAYS ORAL
     Route: 048
     Dates: start: 20200130, end: 20200217

REACTIONS (2)
  - Pharyngeal ulceration [None]
  - Mouth ulceration [None]

NARRATIVE: CASE EVENT DATE: 20200217
